FAERS Safety Report 5052214-8 (Version None)
Quarter: 2006Q2

REPORT INFORMATION
  Report Type: 
  Country: None (occurrence: None)
  Receive Date: 20060614
  Receipt Date: 20060316
  Transmission Date: 20061013
  Serious: Yes (Other)
  Sender: FDA-Public Use
  Company Number: 440719

PATIENT
  Age: 52 Year
  Sex: Female
  Weight: 74.8 kg

DRUGS (3)
  1. BONIVA [Suspect]
     Indication: OSTEOPENIA
     Dosage: 150 MG 1 PER MONTH ORAL
     Route: 048
     Dates: start: 20060115, end: 20060220
  2. ANTIBIOTIC NOS (ANTIBIOTIC NOS) [Suspect]
     Indication: TOOTH DISORDER
     Dosage: ORAL
     Route: 048
  3. CITRACIL + D (CALCIUM CITRATE/ERGOCALCIFEROL) [Concomitant]

REACTIONS (2)
  - HAEMATOCHEZIA [None]
  - MUCOUS STOOLS [None]
